FAERS Safety Report 9053914 (Version 4)
Quarter: 2019Q3

REPORT INFORMATION
  Report Type: Spontaneous
  Country: US (occurrence: RO)
  Receive Date: 20130206
  Receipt Date: 20190913
  Transmission Date: 20191005
  Serious: Yes (Other)
  Sender: FDA-Public Use
  Company Number: RO-AMGEN-ROUCT2013006340

PATIENT
  Age: 59 Year
  Sex: Female
  Weight: 67 kg

DRUGS (7)
  1. ISONIAZID. [Concomitant]
     Active Substance: ISONIAZID
     Indication: LATENT TUBERCULOSIS
     Dosage: 150 MG, 1X/DAY
     Route: 048
     Dates: start: 20120910
  2. LORATADINE. [Concomitant]
     Active Substance: LORATADINE
     Dosage: 10 MG EVERY DAY
     Dates: start: 20130101, end: 20130104
  3. LANSOPRAZOLE. [Concomitant]
     Active Substance: LANSOPRAZOLE
     Indication: HYPERTENSION
     Dosage: 3 G, AS NEEDED
     Route: 048
     Dates: start: 2010
  4. LEFLUNOMIDE. [Concomitant]
     Active Substance: LEFLUNOMIDE
     Indication: RHEUMATOID ARTHRITIS
     Dosage: 20 MG, 1X/DAY
     Route: 048
     Dates: start: 201109
  5. ENBREL [Suspect]
     Active Substance: ETANERCEPT
     Indication: RHEUMATOID ARTHRITIS
     Dosage: 50 MILLIGRAM, QWK
     Route: 058
     Dates: start: 20121016, end: 20130101
  6. ENALAPRIL MALEATE. [Concomitant]
     Active Substance: ENALAPRIL MALEATE
     Indication: HYPERTENSION
     Dosage: 10 MG, 2X/DAY
     Route: 048
     Dates: start: 2010
  7. LORATADINE. [Concomitant]
     Active Substance: LORATADINE
     Indication: ANAPHYLACTIC REACTION
     Dosage: 10 MG EVERY DAY
     Dates: start: 20121225, end: 20121228

REACTIONS (1)
  - Anaphylactic reaction [Recovered/Resolved]

NARRATIVE: CASE EVENT DATE: 20130101
